FAERS Safety Report 7925737-9 (Version None)
Quarter: 2011Q4

REPORT INFORMATION
  Report Type: 
  Country: None (occurrence: None)
  Receive Date: 20111118
  Receipt Date: 20110411
  Transmission Date: 20120403
  Serious: Yes (Other)
  Sender: FDA-Public Use
  Company Number: US-AMGEN-USASP2011011189

PATIENT
  Age: 42 Year
  Sex: Female
  Weight: 123 kg

DRUGS (2)
  1. NAPROXEN [Concomitant]
  2. ENBREL [Suspect]
     Indication: PSORIASIS
     Dosage: 50 MG, QWK
     Route: 058
     Dates: start: 20061201

REACTIONS (1)
  - TRANSAMINASES INCREASED [None]
